FAERS Safety Report 8909416 (Version 1)
Quarter: 2012Q4

REPORT INFORMATION
  Report Type: 
  Country: JP (occurrence: JP)
  Receive Date: 20121115
  Receipt Date: 20121115
  Transmission Date: 20130627
  Serious: Yes (Death, Hospitalization)
  Sender: FDA-Public Use
  Company Number: JP-ROCHE-1092136

PATIENT
  Sex: Male
  Weight: 54 kg

DRUGS (9)
  1. AVASTIN [Suspect]
     Indication: COLON CANCER RECURRENT
     Route: 041
     Dates: start: 20091110
  2. ELPLAT [Concomitant]
     Indication: COLON CANCER RECURRENT
     Route: 041
     Dates: start: 20091110, end: 20100525
  3. 5-FU [Concomitant]
     Indication: COLON CANCER RECURRENT
     Route: 040
     Dates: start: 20091110, end: 20100525
  4. 5-FU [Concomitant]
     Indication: COLON CANCER RECURRENT
     Route: 040
     Dates: start: 20100803, end: 20120321
  5. 5-FU [Concomitant]
     Indication: COLON CANCER RECURRENT
     Route: 040
     Dates: start: 201204, end: 20120626
  6. LEVOFOLINATE [Concomitant]
     Indication: COLON CANCER RECURRENT
     Route: 041
     Dates: start: 20091110, end: 20100525
  7. LEVOFOLINATE [Concomitant]
     Indication: COLON CANCER RECURRENT
     Route: 041
     Dates: start: 20100803, end: 20120321
  8. LEVOFOLINATE [Concomitant]
     Indication: COLON CANCER RECURRENT
     Route: 041
     Dates: start: 201204, end: 20120626
  9. TOPOTECIN [Concomitant]
     Indication: COLON CANCER RECURRENT
     Route: 041
     Dates: start: 20100803, end: 20120321

REACTIONS (2)
  - Disease progression [Fatal]
  - Pulmonary hypertension [Not Recovered/Not Resolved]
